FAERS Safety Report 6548880-8 (Version None)
Quarter: 2010Q1

REPORT INFORMATION
  Report Type: 
  Country: None (occurrence: None)
  Receive Date: 20100125
  Receipt Date: 20100119
  Transmission Date: 20100710
  Serious: Yes (Hospitalization)
  Sender: FDA-Public Use
  Company Number: US-ASTRAZENECA-2007UW11102

PATIENT
  Age: 409 Month
  Sex: Female
  Weight: 96.6 kg

DRUGS (62)
  1. SEROQUEL [Suspect]
     Indication: SCHIZOPHRENIA
     Dosage: 25 MG - 1200 MG
     Route: 048
     Dates: start: 20010114
  2. SEROQUEL [Suspect]
     Route: 048
     Dates: start: 20020801, end: 20020831
  3. SEROQUEL [Suspect]
     Route: 048
     Dates: start: 20020820, end: 20020919
  4. SEROQUEL [Suspect]
     Dosage: 350MG TO 600MG
     Route: 048
     Dates: start: 20030123, end: 20030406
  5. SEROQUEL [Suspect]
     Route: 048
     Dates: start: 20030408, end: 20030507
  6. SEROQUEL [Suspect]
     Route: 048
     Dates: start: 20030522, end: 20030621
  7. SEROQUEL [Suspect]
     Route: 048
     Dates: start: 20030703, end: 20030828
  8. SEROQUEL [Suspect]
     Dosage: 100MG AND 250MG
     Route: 048
     Dates: start: 20030830, end: 20031006
  9. SEROQUEL [Suspect]
     Route: 048
     Dates: start: 20030901, end: 20060601
  10. RISPERDAL [Concomitant]
  11. RISPERDAL [Concomitant]
     Dosage: 1.5 MG - 2.0 MG DAILY
     Route: 048
  12. ZYPREXA [Concomitant]
     Dosage: APPROXIMATELY 20 MG
     Dates: end: 20001001
  13. CLOZARIL [Concomitant]
  14. GEODON [Concomitant]
     Route: 048
     Dates: start: 20090101
  15. GEODON [Concomitant]
     Dosage: 20 MG - 160 MG DAILY
     Route: 048
  16. GEODON [Concomitant]
     Dosage: 20-80 MG
  17. HALDOL [Concomitant]
     Indication: AGITATION
     Route: 048
     Dates: start: 20090101
  18. HALDOL [Concomitant]
     Dosage: 2 MG - 10 MG DAILY
     Route: 048
  19. HALDOL [Concomitant]
     Dosage: 5- 20 MG
     Dates: start: 20020101
  20. NAVANE [Concomitant]
  21. KLONOPIN [Concomitant]
     Dosage: 0.5 MG  - 5 MG DAILY
     Route: 048
  22. PROTONIX [Concomitant]
     Route: 048
  23. THORAZINE [Concomitant]
     Route: 048
  24. TRILEPTAL [Concomitant]
  25. TEGRETOL [Concomitant]
     Route: 048
  26. AMBIEN [Concomitant]
     Route: 048
  27. TRICOR [Concomitant]
     Dosage: 48 MG - 145 MG DAILY
     Route: 048
  28. LIPITOR [Concomitant]
     Route: 048
  29. RESTORIL [Concomitant]
     Indication: INSOMNIA
     Dosage: AS REQUIRED
     Route: 048
  30. ZOLOFT [Concomitant]
     Dosage: 75 MG - 100 MG DAILY
     Route: 048
  31. VISTARIL [Concomitant]
     Route: 048
  32. DEPAKOTE [Concomitant]
     Dosage: 500-2000 MG
     Route: 048
     Dates: start: 20090101
  33. DEPAKOTE [Concomitant]
     Dosage: 250 MG - 500 MG DAILY
     Route: 048
  34. PAXIL [Concomitant]
  35. PREVACID [Concomitant]
     Route: 048
     Dates: start: 20090101
  36. PREVACID [Concomitant]
     Route: 048
  37. NEURONTIN [Concomitant]
     Route: 048
     Dates: start: 20090101
  38. NEURONTIN [Concomitant]
     Dosage: 300 MG - 1200 MG DAILY
     Route: 048
  39. COGENTIN [Concomitant]
     Indication: EXTRAPYRAMIDAL DISORDER
     Route: 048
     Dates: start: 20090101
  40. COGENTIN [Concomitant]
     Dosage: 0.5 MG - 1 MG DAILY
     Route: 048
  41. SYNTHROID [Concomitant]
     Route: 048
  42. GLUCOPHAGE [Concomitant]
     Dosage: 500 MG - 1000 MG DAILY
     Route: 048
  43. ATIVAN [Concomitant]
     Indication: AGITATION
     Route: 048
     Dates: start: 20090101
  44. ATIVAN [Concomitant]
     Route: 048
  45. NEXIUM [Concomitant]
     Route: 048
  46. PARLODEL [Concomitant]
     Route: 048
  47. ABILIFY [Concomitant]
     Route: 048
  48. TOPAMAX [Concomitant]
     Dosage: 200 MG - 400 MG DAILY
  49. MOTRIN [Concomitant]
     Indication: PAIN
  50. TYLENOL (CAPLET) [Concomitant]
     Indication: PAIN
     Route: 048
  51. VALPROIC ACID [Concomitant]
     Dosage: 750-1750 MG
     Dates: start: 20090101
  52. METFORMIN [Concomitant]
     Route: 048
     Dates: start: 20090101
  53. ENABLEX [Concomitant]
     Route: 048
     Dates: start: 20090101
  54. ZOCOR [Concomitant]
     Route: 048
     Dates: start: 20090101
  55. LOVAZA [Concomitant]
     Dosage: 4 CAPSULES  AT NIGHT
     Route: 048
     Dates: start: 20090101
  56. LEVOTHYROXINE SODIUM [Concomitant]
     Route: 048
     Dates: start: 20090101
  57. ASPIRIN [Concomitant]
     Route: 048
     Dates: start: 20090101
  58. JANUVIA [Concomitant]
     Route: 048
     Dates: start: 20090101
  59. AMARYL [Concomitant]
     Route: 048
     Dates: start: 20090101
  60. PRILOSEC [Concomitant]
     Route: 048
     Dates: start: 20090101
  61. NICOTIN PATCH [Concomitant]
     Indication: EX-TOBACCO USER
     Route: 062
     Dates: start: 20090101
  62. VASOTEC [Concomitant]
     Route: 048
     Dates: start: 20090316

REACTIONS (5)
  - DEPRESSION [None]
  - ILL-DEFINED DISORDER [None]
  - SUICIDE ATTEMPT [None]
  - TREATMENT NONCOMPLIANCE [None]
  - TYPE 2 DIABETES MELLITUS [None]
